FAERS Safety Report 4676320-2 (Version None)
Quarter: 2005Q2

REPORT INFORMATION
  Report Type: 
  Country: None (occurrence: None)
  Receive Date: 20050527
  Receipt Date: 20050222
  Transmission Date: 20051028
  Serious: No
  Sender: FDA-Public Use
  Company Number: US-GLAXOSMITHKLINE-A0546721A

PATIENT
  Age: 55 Year
  Sex: Female

DRUGS (2)
  1. WELLBUTRIN XL [Suspect]
     Indication: DEPRESSION
     Dosage: 300MG PER DAY
     Route: 048
     Dates: start: 20050101
  2. SYNTHROID [Concomitant]

REACTIONS (3)
  - FATIGUE [None]
  - INFLUENZA LIKE ILLNESS [None]
  - INSOMNIA [None]
